FAERS Safety Report 12833861 (Version 2)
Quarter: 2016Q4

REPORT INFORMATION
  Report Type: Report from Study
  Country: US (occurrence: US)
  Receive Date: 20161010
  Receipt Date: 20161108
  Transmission Date: 20170207
  Serious: Yes (Hospitalization)
  Sender: FDA-Public Use
  Company Number: US-GILEAD-2016-0237126

PATIENT
  Age: 75 Year
  Sex: Female
  Weight: 114.74 kg

DRUGS (15)
  1. CELLCEPT [Concomitant]
     Active Substance: MYCOPHENOLATE MOFETIL\MYCOPHENOLATE MOFETIL HYDROCHLORIDE
  2. CLARITIN [Concomitant]
     Active Substance: LORATADINE
  3. NEURONTIN [Concomitant]
     Active Substance: GABAPENTIN
  4. SYMBICORT [Concomitant]
     Active Substance: BUDESONIDE\FORMOTEROL FUMARATE DIHYDRATE
  5. AMBRISENTAN [Suspect]
     Active Substance: AMBRISENTAN
     Indication: PRODUCT USED FOR UNKNOWN INDICATION
     Dosage: 5 MG, QD
     Route: 048
     Dates: start: 20160808
  6. HCTZ [Concomitant]
     Active Substance: HYDROCHLOROTHIAZIDE
  7. LASIX [Concomitant]
     Active Substance: FUROSEMIDE
  8. TENORMIN [Concomitant]
     Active Substance: ATENOLOL
  9. ELAVIL [Concomitant]
     Active Substance: AMITRIPTYLINE HYDROCHLORIDE
  10. NORVASC [Concomitant]
     Active Substance: AMLODIPINE BESYLATE
  11. ZOCOR [Concomitant]
     Active Substance: SIMVASTATIN
  12. OXYGEN. [Concomitant]
     Active Substance: OXYGEN
  13. JANUVIA [Concomitant]
     Active Substance: SITAGLIPTIN PHOSPHATE
  14. PRILOSEC [Concomitant]
     Active Substance: OMEPRAZOLE MAGNESIUM
  15. DUONEB [Concomitant]
     Active Substance: ALBUTEROL SULFATE\IPRATROPIUM BROMIDE

REACTIONS (3)
  - Asthenia [Unknown]
  - Hepatic enzyme increased [Recovered/Resolved]
  - Hypokalaemia [Recovered/Resolved]
